FAERS Safety Report 7654267-7 (Version None)
Quarter: 2011Q3

REPORT INFORMATION
  Report Type: 
  Country: None (occurrence: None)
  Receive Date: 20110803
  Receipt Date: 20110722
  Transmission Date: 20111222
  Serious: No
  Sender: FDA-Public Use
  Company Number: US-B.I. PHARMACEUTICALS,INC./RIDGEFIELD-2011-BP-18344BP

PATIENT
  Sex: Male

DRUGS (6)
  1. CATAPRES-TTS-1 [Suspect]
     Indication: HYPERTENSION
     Dosage: 0.2 MG
     Route: 061
  2. HYDROCHLOROTHIAZIDE [Concomitant]
     Indication: HYPERTENSION
     Dosage: 25 MG
     Route: 048
     Dates: end: 20110708
  3. PROSCAR [Concomitant]
     Dosage: 10 MG
     Route: 048
  4. VERAPAMIL EXTENDED-RELEASE [Concomitant]
     Indication: HYPERTENSION
     Dosage: 180 MG
     Route: 048
  5. LISINOPRIL [Concomitant]
     Indication: HYPERTENSION
     Route: 048
     Dates: end: 20110708
  6. VITAMIN TAB [Concomitant]
     Route: 048

REACTIONS (2)
  - WEIGHT DECREASED [None]
  - HYPOTENSION [None]
